FAERS Safety Report 25059694 (Version 1)
Quarter: 2025Q1

REPORT INFORMATION
  Report Type: Spontaneous
  Country: US (occurrence: US)
  Receive Date: 20250310
  Receipt Date: 20250310
  Transmission Date: 20250409
  Serious: No
  Sender: MERCK SHARP & DOHME LLC
  Company Number: US-009507513-2262118

PATIENT
  Age: 27 Year
  Sex: Female

DRUGS (3)
  1. TEDIZOLID [Suspect]
     Active Substance: TEDIZOLID
     Indication: Systemic mycosis
  2. AMPHOTERICIN B [Concomitant]
     Active Substance: AMPHOTERICIN B
     Indication: Systemic mycosis
  3. MEROPENEM [Concomitant]
     Active Substance: MEROPENEM
     Indication: Systemic mycosis

REACTIONS (1)
  - Product use in unapproved indication [Unknown]
